FAERS Safety Report 18885876 (Version 1)
Quarter: 2021Q1

REPORT INFORMATION
  Report Type: Spontaneous
  Country: US (occurrence: US)
  Receive Date: 20210212
  Receipt Date: 20210212
  Transmission Date: 20210420
  Serious: No
  Sender: FDA-Public Use
  Company Number: None

PATIENT
  Age: 80 Year
  Sex: Female
  Weight: 67.6 kg

DRUGS (1)
  1. BAMLANIVIMAB 700 MG INJECTION [Suspect]
     Active Substance: BAMLANIVIMAB
     Indication: SARS-COV-2 TEST POSITIVE
     Route: 042
     Dates: start: 20150104, end: 20150105

REACTIONS (6)
  - Klebsiella test positive [None]
  - Blood sodium decreased [None]
  - Blood thyroid stimulating hormone decreased [None]
  - Mental status changes [None]
  - Gait disturbance [None]
  - Blood magnesium decreased [None]

NARRATIVE: CASE EVENT DATE: 20210209
